FAERS Safety Report 24543557 (Version 2)
Quarter: 2024Q4

REPORT INFORMATION
  Report Type: Report from Study
  Country: US (occurrence: US)
  Receive Date: 20241024
  Receipt Date: 20241118
  Transmission Date: 20250115
  Serious: Yes (Other)
  Sender: ABBVIE
  Company Number: US-ABBVIE-5896450

PATIENT
  Age: 71 Year
  Sex: Female
  Weight: 102.05 kg

DRUGS (3)
  1. HUMIRA [Suspect]
     Active Substance: ADALIMUMAB
     Indication: Rheumatoid arthritis
     Dosage: FORM STRENGTH: 40 MG
     Route: 058
     Dates: start: 2009, end: 20241027
  2. HUMIRA [Suspect]
     Active Substance: ADALIMUMAB
     Dosage: FORM STRENGTH: 40 MG
     Route: 058
     Dates: start: 1999, end: 2008
  3. PERCOCET [Concomitant]
     Active Substance: ACETAMINOPHEN\OXYCODONE HYDROCHLORIDE
     Indication: Pain
     Dates: start: 20241018

REACTIONS (31)
  - Joint lock [Not Recovered/Not Resolved]
  - Erythema [Not Recovered/Not Resolved]
  - Tooth fracture [Unknown]
  - White blood cell count decreased [Not Recovered/Not Resolved]
  - Cellulitis [Unknown]
  - Scab [Recovering/Resolving]
  - Contusion [Unknown]
  - Skin mass [Unknown]
  - Pain [Unknown]
  - Skin exfoliation [Not Recovered/Not Resolved]
  - Dyspnoea [Unknown]
  - Peripheral swelling [Recovering/Resolving]
  - Fatigue [Unknown]
  - Skin haemorrhage [Not Recovered/Not Resolved]
  - Oxygen saturation decreased [Unknown]
  - Memory impairment [Unknown]
  - Fall [Recovered/Resolved]
  - Rib fracture [Recovering/Resolving]
  - Skin weeping [Unknown]
  - Muscle strain [Unknown]
  - Pruritus [Not Recovered/Not Resolved]
  - Hyperhidrosis [Not Recovered/Not Resolved]
  - Joint swelling [Recovered/Resolved]
  - Infection [Not Recovered/Not Resolved]
  - Rash erythematous [Not Recovered/Not Resolved]
  - Back pain [Recovering/Resolving]
  - Tooth injury [Not Recovered/Not Resolved]
  - Tooth fracture [Recovered/Resolved]
  - Skin discolouration [Not Recovered/Not Resolved]
  - Tooth extraction [Recovered/Resolved]
  - Tooth extraction [Unknown]

NARRATIVE: CASE EVENT DATE: 20210101
